FAERS Safety Report 21063864 (Version 1)
Quarter: 2022Q3

REPORT INFORMATION
  Report Type: Spontaneous
  Country: US (occurrence: None)
  Receive Date: 20220710
  Receipt Date: 20220710
  Transmission Date: 20221027
  Serious: Yes (Life-Threatening, Hospitalization)
  Sender: FDA-Public Use
  Company Number: None

PATIENT
  Age: 52 Year
  Sex: Female
  Weight: 84.9 kg

DRUGS (4)
  1. BEBTELOVIMAB [Suspect]
     Active Substance: BEBTELOVIMAB
     Indication: COVID-19
     Dosage: FREQUENCY : ONCE;?
     Route: 040
     Dates: start: 20220710, end: 20220710
  2. acetaminophen 650mg oral [Concomitant]
     Dates: start: 20220710, end: 20220710
  3. famotidine 20mg oral [Concomitant]
     Dates: start: 20220710, end: 20220710
  4. diphenhydramine 25mg oral [Concomitant]
     Dates: start: 20220710, end: 20220710

REACTIONS (8)
  - Flushing [None]
  - Dyspnoea [None]
  - Bradycardia [None]
  - Hypotension [None]
  - Urticaria [None]
  - Cyanosis [None]
  - Nausea [None]
  - Infusion related reaction [None]

NARRATIVE: CASE EVENT DATE: 20220710
